FAERS Safety Report 10014010 (Version 1)
Quarter: 2014Q1

REPORT INFORMATION
  Report Type: Spontaneous
  Country: GB (occurrence: GB)
  Receive Date: 20140317
  Receipt Date: 20140317
  Transmission Date: 20141002
  Serious: Yes (Hospitalization)
  Sender: FDA-Public Use
  Company Number: GB-JNJFOC-20140303766

PATIENT
  Age: 93 Year
  Sex: Female

DRUGS (8)
  1. HALOPERIDOL [Suspect]
     Indication: AGITATION
     Route: 048
     Dates: end: 20140221
  2. HALOPERIDOL [Suspect]
     Indication: AGITATION
     Route: 048
     Dates: start: 20140219
  3. ASPIRIN [Concomitant]
     Route: 065
  4. MOXONIDINE [Concomitant]
     Route: 065
  5. DONEPEZIL [Concomitant]
     Route: 065
  6. FERROUS FUMARATE [Concomitant]
     Route: 065
  7. AMLODIPINE [Concomitant]
     Route: 065
  8. BISOPROLOL [Concomitant]
     Route: 065

REACTIONS (1)
  - Unresponsive to stimuli [Recovered/Resolved]
